FAERS Safety Report 7370673-2 (Version None)
Quarter: 2011Q1

REPORT INFORMATION
  Report Type: 
  Country: None (occurrence: None)
  Receive Date: 20110323
  Receipt Date: 20110316
  Transmission Date: 20110831
  Serious: Yes (Hospitalization)
  Sender: FDA-Public Use
  Company Number: IT-BAYER-2011-023722

PATIENT
  Sex: Female

DRUGS (6)
  1. DEPONIT [Concomitant]
     Indication: CARDIAC FAILURE
     Dosage: DAILY DOSE 10 MG
     Route: 062
     Dates: start: 20000301, end: 20110312
  2. NORVASC [Concomitant]
     Indication: HYPERTENSION
     Dosage: DAILY DOSE 10 MG
     Route: 048
     Dates: start: 20060301, end: 20110312
  3. ASPIRIN [Suspect]
     Indication: PLATELET AGGREGATION INHIBITION
     Dosage: 100 MG, QD
     Route: 048
     Dates: start: 20000301, end: 20110312
  4. PLAVIX [Concomitant]
     Dosage: DAILY DOSE 75 MG
     Route: 048
     Dates: start: 20100301, end: 20110312
  5. TRIATEC [Concomitant]
     Indication: HYPERTENSION
     Dosage: DAILY DOSE 10 MG
     Route: 048
     Dates: start: 20000301, end: 20110312
  6. TORVAST [Concomitant]
     Indication: HYPERCHOLESTEROLAEMIA
     Dosage: DAILY DOSE 20 MG
     Route: 048
     Dates: start: 20060301, end: 20110312

REACTIONS (3)
  - GASTRIC ULCER HAEMORRHAGE [None]
  - MELAENA [None]
  - GASTRITIS EROSIVE [None]
